FAERS Safety Report 19000381 (Version 1)
Quarter: 2021Q1

REPORT INFORMATION
  Report Type: Report from Study
  Country: US (occurrence: US)
  Receive Date: 20210311
  Receipt Date: 20210311
  Transmission Date: 20210420
  Serious: Yes (Other)
  Sender: FDA-Public Use
  Company Number: US-GLAXOSMITHKLINE-US2021GSK058340

PATIENT
  Age: 57 Year
  Sex: Female

DRUGS (3)
  1. RANITIDINE HYDROCHLORIDE. [Suspect]
     Active Substance: RANITIDINE HYDROCHLORIDE
     Indication: PRODUCT USED FOR UNKNOWN INDICATION
     Dosage: UNK
  2. OMEPRAZOLE. [Suspect]
     Active Substance: OMEPRAZOLE
     Indication: PRODUCT USED FOR UNKNOWN INDICATION
     Dosage: UNK
  3. ATEZOLIZUMAB. [Suspect]
     Active Substance: ATEZOLIZUMAB
     Indication: BREAST CANCER
     Dosage: UNK

REACTIONS (7)
  - Dermatitis [Recovering/Resolving]
  - Rash papular [Recovering/Resolving]
  - Keratosis pilaris [Recovering/Resolving]
  - Macule [Recovering/Resolving]
  - Lymphocytic infiltration [Recovering/Resolving]
  - Subacute cutaneous lupus erythematosus [Recovering/Resolving]
  - Lichenoid keratosis [Recovering/Resolving]
